FAERS Safety Report 7481014-4 (Version None)
Quarter: 2011Q2

REPORT INFORMATION
  Report Type: 
  Country: None (occurrence: None)
  Receive Date: 20110504
  Receipt Date: 20110425
  Transmission Date: 20111010
  Serious: Yes (Other)
  Sender: FDA-Public Use
  Company Number: 2010SP028523

PATIENT
  Age: 60 Year
  Sex: Male

DRUGS (4)
  1. SAPHRIS [Suspect]
     Indication: SCHIZOPHRENIA
     Dosage: 10 MG;QD;PO
     Route: 048
     Dates: start: 20100201
  2. SEROQUEL [Concomitant]
  3. OXCARBAZEPINE [Concomitant]
  4. BENZTROPINE MESYLATE [Concomitant]

REACTIONS (3)
  - BRUXISM [None]
  - WEIGHT INCREASED [None]
  - HALLUCINATION, AUDITORY [None]
